FAERS Safety Report 9417001 (Version 2)
Quarter: 2013Q3

REPORT INFORMATION
  Report Type: Spontaneous
  Country: US (occurrence: None)
  Receive Date: 20130722
  Receipt Date: 20130829
  Transmission Date: 20140515
  Serious: Yes (Hospitalization)
  Sender: FDA-Public Use
  Company Number: ACO_37391_2013

PATIENT
  Age: 47 Year
  Sex: Male
  Weight: 92.5 kg

DRUGS (5)
  1. AMPYRA (DALFAMPRIDINE) TABLET, 10MG [Suspect]
     Indication: GAIT DISTURBANCE
     Route: 048
     Dates: start: 20110324
  2. BETHANECHOL CHLORIDE (VETHANECHOL CHLORIDE) [Concomitant]
  3. BACLOFEN (BACLOFEN) [Concomitant]
  4. CANNABIS (CANNABIS) [Concomitant]
  5. VITAMIS [Concomitant]

REACTIONS (2)
  - Femur fracture [None]
  - Fall [None]
